FAERS Safety Report 19809718 (Version 1)
Quarter: 2021Q3

REPORT INFORMATION
  Report Type: Spontaneous
  Country: IN (occurrence: IN)
  Receive Date: 20210909
  Receipt Date: 20210909
  Transmission Date: 20211014
  Serious: Yes (Life-Threatening, Hospitalization)
  Sender: FDA-Public Use
  Company Number: IN-MYLANLABS-2021M1059719

PATIENT
  Age: 38 Year
  Sex: Female

DRUGS (4)
  1. ISOFLURANE. [Concomitant]
     Active Substance: ISOFLURANE
     Indication: ANAESTHESIA
     Dosage: UNK
  2. FENTANYL. [Concomitant]
     Active Substance: FENTANYL
     Indication: ANAESTHESIA
     Dosage: UNK
     Route: 065
  3. ATRACURIUM [Concomitant]
     Active Substance: ATRACURIUM
     Indication: ANAESTHESIA
     Dosage: INFUSION
     Route: 065
  4. HEPARIN [Suspect]
     Active Substance: HEPARIN SODIUM
     Indication: ANTICOAGULANT THERAPY
     Dosage: UNK
     Route: 065

REACTIONS (2)
  - Pulmonary haemorrhage [Recovered/Resolved]
  - Haemodynamic instability [Recovered/Resolved]
